FAERS Safety Report 16451161 (Version 1)
Quarter: 2019Q2

REPORT INFORMATION
  Report Type: Spontaneous
  Country: US (occurrence: US)
  Receive Date: 20190619
  Receipt Date: 20190619
  Transmission Date: 20190711
  Serious: Yes (Hospitalization)
  Sender: FDA-Public Use
  Company Number: US-BAUSCH-BL-2019-017393

PATIENT
  Sex: Female

DRUGS (1)
  1. XIFAXAN [Suspect]
     Active Substance: RIFAXIMIN
     Indication: PRODUCT USED FOR UNKNOWN INDICATION
     Dosage: HAS BEEN ON THE PRODUCT FOR OVER 6 MONTHS
     Route: 065
     Dates: end: 20190612

REACTIONS (3)
  - Therapy cessation [Unknown]
  - Hospitalisation [Unknown]
  - Product supply issue [Unknown]

NARRATIVE: CASE EVENT DATE: 201906
